FAERS Safety Report 15766701 (Version 2)
Quarter: 2019Q1

REPORT INFORMATION
  Report Type: Spontaneous
  Country: DE (occurrence: DE)
  Receive Date: 20181227
  Receipt Date: 20190108
  Transmission Date: 20190417
  Serious: Yes (Death, Hospitalization, Other)
  Sender: FDA-Public Use
  Company Number: GXKR2006DE08805

PATIENT
  Age: 74 Year
  Sex: Female

DRUGS (1)
  1. METHOTREXATE. [Suspect]
     Active Substance: METHOTREXATE
     Indication: RHEUMATOID ARTHRITIS
     Dosage: 10 MG, QD
     Route: 048

REACTIONS (7)
  - Medication error [Fatal]
  - Rash [Fatal]
  - Accidental overdose [Fatal]
  - Toxicity to various agents [Fatal]
  - Pancytopenia [Fatal]
  - Pneumonia [Fatal]
  - Overdose [Unknown]

NARRATIVE: CASE EVENT DATE: 2000
